FAERS Safety Report 17223656 (Version 1)
Quarter: 2019Q4

REPORT INFORMATION
  Report Type: Spontaneous
  Country: US (occurrence: US)
  Receive Date: 20191209
  Receipt Date: 20191209
  Transmission Date: 20200122
  Serious: Yes (Life-Threatening, Hospitalization)
  Sender: FDA-Public Use
  Company Number: None

PATIENT
  Age: 77 Year
  Sex: Male
  Weight: 111 kg

DRUGS (1)
  1. METOPROLOL (METOPROLOL TARTRATE) [Suspect]
     Active Substance: METOPROLOL TARTRATE
     Indication: ATRIAL FIBRILLATION
     Route: 048
     Dates: start: 20150317, end: 20190920

REACTIONS (6)
  - Vomiting [None]
  - Nausea [None]
  - Dizziness [None]
  - Palpitations [None]
  - Bradycardia [None]
  - Dyspnoea [None]

NARRATIVE: CASE EVENT DATE: 20190920
